FAERS Safety Report 4951604-9 (Version None)
Quarter: 2006Q1

REPORT INFORMATION
  Report Type: 
  Country: None (occurrence: None)
  Receive Date: 20060322
  Receipt Date: 20060313
  Transmission Date: 20060701
  Serious: Yes (Hospitalization)
  Sender: FDA-Public Use
  Company Number: DL2006119

PATIENT
  Age: 26 Year
  Sex: Female

DRUGS (2)
  1. MIFEPRISTONE TABLETS, 200 MG (DANCO LABS) [Suspect]
     Indication: ABORTION INDUCED
     Dosage: 200 MG, ORAL
     Route: 048
     Dates: start: 20060106
  2. MISOPROSTOL [Suspect]
     Dosage: 800 MCG , VAGINAL
     Route: 067
     Dates: start: 20060107

REACTIONS (5)
  - HAEMORRHAGE [None]
  - MUSCLE SPASMS [None]
  - NAUSEA [None]
  - RUPTURED ECTOPIC PREGNANCY [None]
  - VOMITING [None]
